FAERS Safety Report 8393865-2 (Version None)
Quarter: 2012Q2

REPORT INFORMATION
  Report Type: 
  Country: None (occurrence: None)
  Receive Date: 20120530
  Receipt Date: 20120519
  Transmission Date: 20120825
  Serious: Yes (Other)
  Sender: FDA-Public Use
  Company Number: GB-VERTEX PHARMACEUTICALS INC.-000000000000000565

PATIENT
  Sex: Male

DRUGS (1)
  1. TELAPREVIR [Suspect]
     Indication: HEPATITIS C
     Dosage: DOSAGE FORM: TABLET
     Route: 048
     Dates: start: 20120314

REACTIONS (6)
  - NAUSEA [None]
  - PAROSMIA [None]
  - PRURITUS [None]
  - DECREASED APPETITE [None]
  - RASH [None]
  - FATIGUE [None]
